FAERS Safety Report 18473784 (Version 2)
Quarter: 2020Q4

REPORT INFORMATION
  Report Type: Spontaneous
  Country: CN (occurrence: CN)
  Receive Date: 20201106
  Receipt Date: 20201112
  Transmission Date: 20210114
  Serious: Yes (Hospitalization, Other)
  Sender: FDA-Public Use
  Company Number: CN-ASTRAZENECA-2020SF43812

PATIENT
  Age: 68 Year
  Sex: Female
  Weight: 75 kg

DRUGS (2)
  1. INSULIN [Concomitant]
     Active Substance: INSULIN NOS
     Indication: DIABETES MELLITUS
  2. IRESSA [Suspect]
     Active Substance: GEFITINIB
     Indication: NON-SMALL CELL LUNG CANCER
     Route: 048
     Dates: start: 201808, end: 202006

REACTIONS (7)
  - Back pain [Unknown]
  - Pain in extremity [Recovering/Resolving]
  - Drug resistance [Unknown]
  - Metastases to bone [Unknown]
  - Fall [Unknown]
  - Drug ineffective [Unknown]
  - Bone pain [Unknown]

NARRATIVE: CASE EVENT DATE: 2019
